FAERS Safety Report 25518635 (Version 2)
Quarter: 2025Q3

REPORT INFORMATION
  Report Type: Spontaneous
  Country: US (occurrence: US)
  Receive Date: 20250704
  Receipt Date: 20250810
  Transmission Date: 20251021
  Serious: No
  Sender: ALEXION PHARMACEUTICALS
  Company Number: US-AstraZeneca-CH-00898514AP

PATIENT
  Age: 72 Year
  Sex: Female

DRUGS (2)
  1. FASLODEX [Suspect]
     Active Substance: FULVESTRANT
     Dosage: UNK, QMONTH
     Dates: start: 202411
  2. FASLODEX [Suspect]
     Active Substance: FULVESTRANT

REACTIONS (5)
  - Wrong technique in product usage process [Unknown]
  - Injection site pain [Unknown]
  - Incorrect dose administered [Unknown]
  - Injection site discolouration [Unknown]
  - Drug ineffective [Unknown]

NARRATIVE: CASE EVENT DATE: 20240401
